FAERS Safety Report 9696425 (Version 2)
Quarter: 2013Q4

REPORT INFORMATION
  Report Type: Spontaneous
  Country: IT (occurrence: None)
  Receive Date: 20131115
  Receipt Date: 20131125
  Transmission Date: 20140711
  Serious: Yes (Hospitalization)
  Sender: FDA-Public Use
  Company Number: VAL_02819_2013

PATIENT
  Age: 77 Year
  Sex: Female

DRUGS (7)
  1. ROCALTROL [Suspect]
     Indication: RENAL FAILURE CHRONIC
     Route: 048
     Dates: start: 20130809, end: 20130915
  2. CACIT [Suspect]
     Indication: RENAL FAILURE CHRONIC
     Route: 048
     Dates: start: 20130809, end: 20130915
  3. SIMVASTATIN [Concomitant]
  4. ATENOLOL [Concomitant]
  5. CARDIOASPIRIN [Concomitant]
  6. LIBRADIN [Concomitant]
  7. ARANESP [Concomitant]

REACTIONS (4)
  - Hypercalcaemia [None]
  - Iatrogenic injury [None]
  - Medication error [None]
  - Blood creatinine increased [None]
